FAERS Safety Report 16945429 (Version 1)
Quarter: 2019Q4

REPORT INFORMATION
  Report Type: Spontaneous
  Country: US (occurrence: US)
  Receive Date: 20191021
  Receipt Date: 20191021
  Transmission Date: 20200122
  Serious: Yes (Hospitalization)
  Sender: FDA-Public Use
  Company Number: None

PATIENT
  Age: 77 Year
  Sex: Female
  Weight: 52.2 kg

DRUGS (18)
  1. OMEPRAZOLE. [Concomitant]
     Active Substance: OMEPRAZOLE
  2. ACIDOPHILUS PROBIOTIC [Concomitant]
     Active Substance: LACTOBACILLUS ACIDOPHILUS
  3. VITAMIN D3 [Concomitant]
     Active Substance: CHOLECALCIFEROL
  4. AMITIZA [Suspect]
     Active Substance: LUBIPROSTONE
     Dosage: ?          OTHER STRENGTH:MCG;QUANTITY:1 TABLET(S);?
     Dates: start: 20191018, end: 20191018
  5. CALCIUM CITRATE [Concomitant]
     Active Substance: CALCIUM CITRATE
  6. VITAMIN B12 [Concomitant]
     Active Substance: CYANOCOBALAMIN
  7. IMIPRAMINE [Concomitant]
     Active Substance: IMIPRAMINE
  8. KLONOPIN [Concomitant]
     Active Substance: CLONAZEPAM
  9. FLUTICASONE PROPIONATE. [Concomitant]
     Active Substance: FLUTICASONE PROPIONATE
  10. OMEGA 3 KRILL OIL [Concomitant]
  11. FOSAMAX [Concomitant]
     Active Substance: ALENDRONATE SODIUM
  12. VITAMIN [Concomitant]
     Active Substance: VITAMINS
  13. CRANBERRY. [Concomitant]
     Active Substance: CRANBERRY
  14. TYLENOL [Concomitant]
     Active Substance: ACETAMINOPHEN
  15. GABAPENTIN. [Concomitant]
     Active Substance: GABAPENTIN
  16. SERZONE [Concomitant]
     Active Substance: NEFAZODONE HYDROCHLORIDE
  17. SYNTHROID [Concomitant]
     Active Substance: LEVOTHYROXINE SODIUM
  18. IRON SLOW FE [Concomitant]

REACTIONS (4)
  - Loss of consciousness [None]
  - Skin laceration [None]
  - Dizziness [None]
  - Headache [None]

NARRATIVE: CASE EVENT DATE: 20191019
